FAERS Safety Report 4318669-9 (Version None)
Quarter: 2004Q1

REPORT INFORMATION
  Report Type: 
  Country: None (occurrence: None)
  Receive Date: 20040318
  Receipt Date: 20040122
  Transmission Date: 20041129
  Serious: Yes (Life-Threatening, Hospitalization)
  Sender: FDA-Public Use
  Company Number: PHBS2004JP01092

PATIENT
  Age: 53 Year
  Sex: Male

DRUGS (6)
  1. NICARDIPINE HCL [Suspect]
     Indication: AORTIC DISSECTION
     Dosage: 400 MG/DAY
     Dates: start: 20030212, end: 20030318
  2. METOPROLOL [Concomitant]
     Indication: AORTIC DISSECTION
     Dosage: 20 MG, QD
     Route: 048
     Dates: start: 20030213, end: 20030213
  3. METOPROLOL [Concomitant]
     Dosage: 40 MG, BID
     Route: 048
     Dates: start: 20030214, end: 20030226
  4. METOPROLOL [Concomitant]
     Dosage: 40 MG, QID
     Route: 048
     Dates: start: 20030227, end: 20030303
  5. METOPROLOL [Concomitant]
     Dosage: 60 MG, QID
     Route: 048
     Dates: start: 20030304
  6. NITROGLYCERIN [Suspect]
     Indication: AORTIC DISSECTION
     Dosage: 200 MG/DAY
     Dates: start: 20030212, end: 20030318

REACTIONS (5)
  - AORTIC DISSECTION [None]
  - BACK PAIN [None]
  - DISEASE PROGRESSION [None]
  - DYSPNOEA EXACERBATED [None]
  - HYPOXIA [None]
